FAERS Safety Report 24205901 (Version 1)
Quarter: 2024Q3

REPORT INFORMATION
  Report Type: Spontaneous
  Country: US (occurrence: None)
  Receive Date: 20240812
  Receipt Date: 20240812
  Transmission Date: 20241016
  Serious: Yes (Life-Threatening, Hospitalization, Disabling, Other)
  Sender: Public
  Company Number: None

PATIENT
  Age: 71 Year
  Sex: Female
  Weight: 60.75 kg

DRUGS (8)
  1. AMIODARONE [Suspect]
     Active Substance: AMIODARONE
     Indication: Atrial fibrillation
     Dosage: 1 TABLET DAILY ORAL
     Route: 048
     Dates: start: 20231124, end: 20240716
  2. Xerlto [Concomitant]
  3. ASPIRIN [Concomitant]
     Active Substance: ASPIRIN
  4. METOPROLOL [Concomitant]
     Active Substance: METOPROLOL
  5. EZETIMIBE [Concomitant]
     Active Substance: EZETIMIBE
  6. alpralozam [Concomitant]
  7. ROSUVASTATIN CALCIUM [Concomitant]
  8. citalipram hydrobromade [Concomitant]

REACTIONS (4)
  - Syncope [None]
  - Head injury [None]
  - Lung neoplasm malignant [None]
  - Metastases to liver [None]

NARRATIVE: CASE EVENT DATE: 20240322
